FAERS Safety Report 16811176 (Version 3)
Quarter: 2019Q3

REPORT INFORMATION
  Report Type: Spontaneous
  Country: CA (occurrence: CA)
  Receive Date: 20190916
  Receipt Date: 20190926
  Transmission Date: 20191005
  Serious: Yes (Death, Life-Threatening, Hospitalization, Other)
  Sender: FDA-Public Use
  Company Number: CA-PFIZER INC-2014086642

PATIENT
  Age: 41 Year
  Sex: Male
  Weight: 83 kg

DRUGS (21)
  1. ACYCLOVIR [ACICLOVIR] [Suspect]
     Active Substance: ACYCLOVIR
     Indication: ANTIVIRAL TREATMENT
     Route: 065
  2. ENBREL [Suspect]
     Active Substance: ETANERCEPT
     Indication: PSORIASIS
     Dosage: 50 MILLIGRAM, QWK
     Route: 058
     Dates: start: 201112
  3. NABUMETONE. [Concomitant]
     Active Substance: NABUMETONE
     Dosage: UNK
  4. PYRAZINAMIDE. [Concomitant]
     Active Substance: PYRAZINAMIDE
     Dosage: UNK
  5. CELECOXIB. [Suspect]
     Active Substance: CELECOXIB
     Indication: ARTHRITIS
     Dosage: UNK
     Route: 065
     Dates: start: 201203
  6. AMPHOTERICIN B. [Suspect]
     Active Substance: AMPHOTERICIN B
     Indication: ANTIFUNGAL TREATMENT
     Dosage: UNK
     Route: 065
     Dates: start: 201206
  7. CELECOXIB. [Suspect]
     Active Substance: CELECOXIB
     Dosage: UNK
     Route: 065
  8. SULFASALAZINE. [Concomitant]
     Active Substance: SULFASALAZINE
     Dosage: UNK
  9. ENBREL [Suspect]
     Active Substance: ETANERCEPT
     Indication: PSORIATIC ARTHROPATHY
     Dosage: UNK
  10. LEFLUNOMIDE. [Suspect]
     Active Substance: LEFLUNOMIDE
     Indication: ARTHRITIS
     Dosage: UNK
     Route: 065
     Dates: start: 201202
  11. LEFLUNOMIDE. [Suspect]
     Active Substance: LEFLUNOMIDE
     Dosage: UNK
     Route: 065
  12. ETHAMBUTOL [Suspect]
     Active Substance: ETHAMBUTOL HYDROCHLORIDE
     Dosage: UNK
     Route: 065
     Dates: start: 201206, end: 2012
  13. ENBREL [Suspect]
     Active Substance: ETANERCEPT
     Indication: ARTHRITIS
  14. RIFAMPICIN [Suspect]
     Active Substance: RIFAMPIN
     Route: 065
  15. DICLOFENAC/MISOPROSTOL [Concomitant]
     Active Substance: DICLOFENAC SODIUM\MISOPROSTOL
     Dosage: UNK
  16. METHYLPREDNISOLONE. [Suspect]
     Active Substance: METHYLPREDNISOLONE
     Dosage: UNK
     Route: 065
  17. AZATHIOPRINE. [Concomitant]
     Active Substance: AZATHIOPRINE
     Dosage: UNK
  18. ENBREL [Suspect]
     Active Substance: ETANERCEPT
     Indication: ANKYLOSING SPONDYLITIS
  19. ISONIAZID. [Suspect]
     Active Substance: ISONIAZID
     Dosage: UNK
     Dates: start: 201206, end: 2012
  20. PYRAMIDE [Suspect]
     Active Substance: PYRAZINAMIDE
     Dosage: UNK
     Route: 065
     Dates: start: 201206, end: 2012
  21. METHOTREXATE. [Concomitant]
     Active Substance: METHOTREXATE
     Dosage: UNK

REACTIONS (29)
  - Disseminated intravascular coagulation [Fatal]
  - Granuloma [Fatal]
  - Hepatic enzyme increased [Fatal]
  - Sideroblastic anaemia [Fatal]
  - Splenomegaly [Fatal]
  - Upper gastrointestinal haemorrhage [Fatal]
  - Vitamin B1 decreased [Fatal]
  - Viral infection [Fatal]
  - Haemolytic anaemia [Fatal]
  - Pancytopenia [Fatal]
  - Marrow hyperplasia [Fatal]
  - Pulseless electrical activity [Fatal]
  - Acute kidney injury [Fatal]
  - Implant site infection [Fatal]
  - Generalised oedema [Unknown]
  - Liver function test abnormal [Fatal]
  - Sepsis [Fatal]
  - Encephalopathy [Fatal]
  - Blood creatinine increased [Fatal]
  - Ankylosing spondylitis [Fatal]
  - Jaundice [Fatal]
  - Autoimmune haemolytic anaemia [Fatal]
  - Liver disorder [Fatal]
  - Pneumonia [Fatal]
  - Mycobacterial infection [Fatal]
  - Thrombocytopenia [Fatal]
  - Ascites [Fatal]
  - Splenic embolism [Fatal]
  - Drug ineffective [Unknown]

NARRATIVE: CASE EVENT DATE: 2012
